FAERS Safety Report 11368993 (Version 2)
Quarter: 2015Q3

REPORT INFORMATION
  Report Type: Spontaneous
  Country: DE (occurrence: DE)
  Receive Date: 20150812
  Receipt Date: 20150821
  Transmission Date: 20151125
  Serious: Yes (Hospitalization, Other)
  Sender: FDA-Public Use
  Company Number: PHHY2015DE095064

PATIENT
  Sex: Male

DRUGS (1)
  1. GILENYA [Suspect]
     Active Substance: FINGOLIMOD HYDROCHLORIDE
     Indication: MULTIPLE SCLEROSIS
     Dosage: 0.5 MG, UNK
     Route: 065
     Dates: start: 2012

REACTIONS (25)
  - Blood immunoglobulin A increased [Unknown]
  - Blood immunoglobulin M increased [Unknown]
  - Partial seizures [Unknown]
  - Complex partial seizures [Unknown]
  - Ataxia [Not Recovered/Not Resolved]
  - White blood cell count increased [Unknown]
  - Multiple sclerosis relapse [Recovering/Resolving]
  - Headache [Unknown]
  - Muscle rigidity [Unknown]
  - Aphasia [Not Recovered/Not Resolved]
  - Hemianopia homonymous [Recovering/Resolving]
  - Hemiparesis [Not Recovered/Not Resolved]
  - Visual impairment [Unknown]
  - Blood albumin increased [Unknown]
  - Blood pressure fluctuation [Unknown]
  - Muscle spasms [Unknown]
  - Language disorder [Recovering/Resolving]
  - Depression [Unknown]
  - Dyskinesia [Unknown]
  - Vertigo [Unknown]
  - Central nervous system lesion [Unknown]
  - Dysarthria [Recovering/Resolving]
  - Dysphagia [Recovering/Resolving]
  - Pallor [Unknown]
  - Cognitive disorder [Unknown]

NARRATIVE: CASE EVENT DATE: 2015
